FAERS Safety Report 9876553 (Version 2)
Quarter: 2014Q1

REPORT INFORMATION
  Report Type: Spontaneous
  Country: US (occurrence: US)
  Receive Date: 20140206
  Receipt Date: 20140206
  Transmission Date: 20141002
  Serious: No
  Sender: FDA-Public Use
  Company Number: US-ACORDA-ACO_37740_2013

PATIENT
  Age: 64 Year
  Sex: Female
  Weight: 87.75 kg

DRUGS (2)
  1. AMPYRA [Suspect]
     Indication: GAIT DISTURBANCE
     Dosage: 10 MG, Q 12 HRS
     Route: 048
     Dates: start: 20130731, end: 20130801
  2. ZOLOFT [Concomitant]
     Indication: PRODUCT USED FOR UNKNOWN INDICATION
     Dosage: 50 MG, UNK
     Dates: start: 2013

REACTIONS (4)
  - Feeling abnormal [Recovering/Resolving]
  - Middle insomnia [Unknown]
  - Dizziness [Recovered/Resolved]
  - Nausea [Unknown]
